FAERS Safety Report 7963758-0 (Version None)
Quarter: 2011Q4

REPORT INFORMATION
  Report Type: 
  Country: None (occurrence: None)
  Receive Date: 20111208
  Receipt Date: 20111128
  Transmission Date: 20120403
  Serious: Yes (Hospitalization)
  Sender: FDA-Public Use
  Company Number: US-BAYER-2011-033934

PATIENT
  Age: 24 Year
  Sex: Female
  Weight: 58.957 kg

DRUGS (6)
  1. ASPIRIN [Concomitant]
  2. RITALIN [Concomitant]
  3. YAZ [Suspect]
     Indication: PREMENSTRUAL SYNDROME
     Dosage: UNK
     Dates: start: 20070101, end: 20080201
  4. ZOLOFT [Concomitant]
  5. YASMIN [Suspect]
     Indication: PREMENSTRUAL SYNDROME
     Dosage: UNK
     Dates: start: 20070101, end: 20080201
  6. HEART MEDICATIONS [Concomitant]
     Dosage: UNK
     Dates: start: 20071001

REACTIONS (4)
  - INJURY [None]
  - PULMONARY EMBOLISM [None]
  - DEEP VEIN THROMBOSIS [None]
  - PAIN [None]
